APPROVED DRUG PRODUCT: THIOTHIXENE HYDROCHLORIDE INTENSOL
Active Ingredient: THIOTHIXENE HYDROCHLORIDE
Strength: EQ 5MG BASE/ML
Dosage Form/Route: CONCENTRATE;ORAL
Application: A073494 | Product #001
Applicant: HIKMA PHARMACEUTICALS USA INC
Approved: Jun 30, 1992 | RLD: No | RS: No | Type: DISCN